FAERS Safety Report 23825705 (Version 1)
Quarter: 2024Q2

REPORT INFORMATION
  Report Type: Spontaneous
  Country: EG (occurrence: EG)
  Receive Date: 20240507
  Receipt Date: 20240507
  Transmission Date: 20240716
  Serious: Yes (Life-Threatening, Hospitalization, Other)
  Sender: FDA-Public Use
  Company Number: EG-PFIZER INC-PV202400058416

PATIENT
  Age: 27 Year
  Sex: Female
  Weight: 66 kg

DRUGS (3)
  1. IRINOTECAN [Suspect]
     Active Substance: IRINOTECAN
     Indication: Colon cancer
     Dosage: 306 MG, CYCLIC, EVERY 14 DAYS
     Route: 042
     Dates: start: 20240214
  2. IRINOTECAN [Suspect]
     Active Substance: IRINOTECAN
     Dosage: 306 MG, CYCLIC, EVERY 14 DAYS
     Route: 042
  3. MVASI [Concomitant]
     Active Substance: BEVACIZUMAB-AWWB
     Dosage: 400 MG, CYCLIC, EVERY 14 DAYS
     Route: 042

REACTIONS (6)
  - Dyspnoea [Recovered/Resolved]
  - Vomiting [Recovered/Resolved]
  - Chills [Recovered/Resolved]
  - Erythema [Recovered/Resolved]
  - Flushing [Recovered/Resolved]
  - Hyperhidrosis [Recovered/Resolved]
